FAERS Safety Report 16661785 (Version 1)
Quarter: 2019Q3

REPORT INFORMATION
  Report Type: Spontaneous
  Country: JP (occurrence: JP)
  Receive Date: 20190802
  Receipt Date: 20190802
  Transmission Date: 20191004
  Serious: Yes (Hospitalization)
  Sender: FDA-Public Use
  Company Number: PHHY2019JP173295

PATIENT
  Age: 78 Year
  Sex: Female

DRUGS (1)
  1. DONEPEZIL. [Suspect]
     Active Substance: DONEPEZIL
     Indication: PRODUCT USED FOR UNKNOWN INDICATION
     Dosage: 5 MG, QD
     Route: 065

REACTIONS (8)
  - Decreased appetite [Recovering/Resolving]
  - Eosinophilia [Recovering/Resolving]
  - Muscular weakness [Recovered/Resolved]
  - Weight decreased [Unknown]
  - Hypokalaemia [Recovering/Resolving]
  - Secondary adrenocortical insufficiency [Unknown]
  - Fatigue [Unknown]
  - Pyrexia [Recovered/Resolved]
